FAERS Safety Report 12880472 (Version 1)
Quarter: 2016Q4

REPORT INFORMATION
  Report Type: Spontaneous
  Country: US (occurrence: US)
  Receive Date: 20161021
  Receipt Date: 20161021
  Transmission Date: 20170207
  Serious: No
  Sender: FDA-Public Use
  Company Number: None

PATIENT
  Age: 69 Year
  Sex: Female

DRUGS (1)
  1. IBRANCE [Suspect]
     Active Substance: PALBOCICLIB
     Indication: BREAST CANCER
     Dosage: 125 MG, DAILY ON DAYS 1-21 EVERY 28 DAY, BY MOUTH
     Route: 048
     Dates: start: 20151123

REACTIONS (3)
  - Lymphadenopathy [None]
  - Oedema [None]
  - Weight increased [None]

NARRATIVE: CASE EVENT DATE: 20161013
